FAERS Safety Report 6388284-4 (Version None)
Quarter: 2009Q4

REPORT INFORMATION
  Report Type: 
  Country: None (occurrence: None)
  Receive Date: 20091001
  Receipt Date: 20091001
  Transmission Date: 20100525
  Serious: Yes (Hospitalization)
  Sender: FDA-Public Use
  Company Number: None

PATIENT
  Age: 26 Year
  Sex: Male

DRUGS (3)
  1. DIVALPROEX SODIUM [Suspect]
     Indication: ANXIETY
     Dosage: 500 MG AT BEDTIME PO
     Route: 048
     Dates: start: 20090924, end: 20090928
  2. DIVALPROEX SODIUM [Suspect]
     Indication: DEPRESSION
     Dosage: 500 MG AT BEDTIME PO
     Route: 048
     Dates: start: 20090924, end: 20090928
  3. DIVALPROEX SODIUM [Suspect]
     Indication: POST-TRAUMATIC STRESS DISORDER
     Dosage: 500 MG AT BEDTIME PO
     Route: 048
     Dates: start: 20090924, end: 20090928

REACTIONS (1)
  - HEPATIC ENZYME INCREASED [None]
